FAERS Safety Report 6430281-4 (Version None)
Quarter: 2009Q4

REPORT INFORMATION
  Report Type: 
  Country: None (occurrence: None)
  Receive Date: 20091105
  Receipt Date: 20091105
  Transmission Date: 20100525
  Serious: Yes (Other)
  Sender: FDA-Public Use
  Company Number: None

PATIENT
  Age: 46 Year
  Sex: Male
  Weight: 65.7716 kg

DRUGS (1)
  1. CEFAZOLIN [Suspect]
     Indication: STAPHYLOCOCCAL INFECTION
     Dosage: 2 GM Q8H IV
     Route: 042
     Dates: start: 20091012, end: 20091104

REACTIONS (4)
  - INFUSION RELATED REACTION [None]
  - RASH GENERALISED [None]
  - SENSATION OF FOREIGN BODY [None]
  - VOMITING [None]
